FAERS Safety Report 14252449 (Version 2)
Quarter: 2018Q1

REPORT INFORMATION
  Report Type: Report from Study
  Country: US (occurrence: US)
  Receive Date: 20171205
  Receipt Date: 20180129
  Transmission Date: 20180508
  Serious: Yes (Other)
  Sender: FDA-Public Use
  Company Number: US-BIOGEN-2017BI00490409

PATIENT
  Sex: Female

DRUGS (3)
  1. PLEGRIDY [Suspect]
     Active Substance: PEGINTERFERON BETA-1A
     Indication: MULTIPLE SCLEROSIS
     Route: 058
     Dates: start: 20150115, end: 20151116
  2. PLEGRIDY [Suspect]
     Active Substance: PEGINTERFERON BETA-1A
     Route: 058
     Dates: start: 20150320, end: 20151117
  3. TECFIDERA [Suspect]
     Active Substance: DIMETHYL FUMARATE
     Indication: MULTIPLE SCLEROSIS
     Route: 048
     Dates: start: 20131118, end: 20141001

REACTIONS (1)
  - Cytogenetic analysis abnormal [Not Recovered/Not Resolved]
